FAERS Safety Report 14838843 (Version 13)
Quarter: 2022Q1

REPORT INFORMATION
  Report Type: Report from Study
  Country: CA (occurrence: CA)
  Receive Date: 20180502
  Receipt Date: 20220113
  Transmission Date: 20220423
  Serious: Yes (Hospitalization, Other)
  Sender: FDA-Public Use
  Company Number: PHHY2013CA098527

PATIENT
  Age: 74 Year
  Sex: Male

DRUGS (7)
  1. SANDOSTATIN [Suspect]
     Active Substance: OCTREOTIDE ACETATE
     Indication: Neuroendocrine tumour
     Dosage: UNK (TEST DOSE) ONCE
     Route: 058
     Dates: start: 20130405, end: 20130405
  2. SANDOSTATIN [Suspect]
     Active Substance: OCTREOTIDE ACETATE
  3. SANDOSTATIN [Suspect]
     Active Substance: OCTREOTIDE ACETATE
  4. SANDOSTATIN LAR DEPOT [Suspect]
     Active Substance: OCTREOTIDE ACETATE
     Indication: Neuroendocrine tumour
     Dosage: 30 MG, QMO ( EVERY 4 WEEKS)
     Route: 030
     Dates: start: 20130415
  5. SANDOSTATIN LAR DEPOT [Suspect]
     Active Substance: OCTREOTIDE ACETATE
  6. SANDOSTATIN LAR DEPOT [Suspect]
     Active Substance: OCTREOTIDE ACETATE
  7. BISOPROLOL [Concomitant]
     Active Substance: BISOPROLOL
     Indication: Product used for unknown indication
     Dosage: UNK (BETA BLOCKER)
     Route: 065

REACTIONS (16)
  - Intestinal obstruction [Recovering/Resolving]
  - Urinary tract obstruction [Unknown]
  - Mass [Unknown]
  - Back pain [Unknown]
  - Blood pressure increased [Not Recovered/Not Resolved]
  - Tooth infection [Recovered/Resolved]
  - Arthritis [Unknown]
  - Muscle spasms [Unknown]
  - Pain in extremity [Unknown]
  - Body temperature decreased [Unknown]
  - Blood pressure systolic increased [Unknown]
  - Asthenia [Unknown]
  - Mobility decreased [Unknown]
  - Heart rate decreased [Unknown]
  - Vomiting [Unknown]
  - Diarrhoea [Unknown]

NARRATIVE: CASE EVENT DATE: 20150222
